FAERS Safety Report 7424349-3 (Version None)
Quarter: 2011Q2

REPORT INFORMATION
  Report Type: 
  Country: None (occurrence: None)
  Receive Date: 20110411
  Receipt Date: 20110331
  Transmission Date: 20111010
  Serious: Yes (Hospitalization)
  Sender: FDA-Public Use
  Company Number: UTC-005761

PATIENT
  Age: 86 Year
  Sex: Female
  Weight: 42.72 kg

DRUGS (6)
  1. DIURETICS (DIURETICS) [Concomitant]
  2. COUMADIN [Concomitant]
  3. REVATIO [Concomitant]
  4. TYVASO [Suspect]
     Indication: PULMONARY HYPERTENSION
     Dosage: 216 MCG (54 MCG,4 IN 1 D),INHALATION
     Route: 055
     Dates: start: 20101213, end: 20110328
  5. OXYGEN (OXYGEN) [Concomitant]
  6. SPIRIVA [Concomitant]

REACTIONS (3)
  - ANAEMIA [None]
  - HYPOTENSION [None]
  - CARDIAC FAILURE CONGESTIVE [None]
